FAERS Safety Report 6480461-7 (Version None)
Quarter: 2009Q4

REPORT INFORMATION
  Report Type: 
  Country: None (occurrence: None)
  Receive Date: 20091203
  Receipt Date: 20091118
  Transmission Date: 20100525
  Serious: Yes (Hospitalization)
  Sender: FDA-Public Use
  Company Number: 09-PDX10-01043

PATIENT
  Age: 76 Year
  Sex: Male
  Weight: 76 kg

DRUGS (4)
  1. PRALATREXATE(20 MG/ML, INJECTION FOR INFUSION) [Suspect]
     Indication: ANGIOIMMUNOBLASTIC T-CELL LYMPHOMA
     Dosage: 20 MG (20 MG,1 IN 2 WK),IV
     Route: 042
     Dates: start: 20090818
  2. GEMCITABINE [Suspect]
     Indication: ANGIOIMMUNOBLASTIC T-CELL LYMPHOMA
     Dosage: 800 MG (800 MG,1 IN 2 WK),IV
     Route: 042
     Dates: start: 20090819
  3. FLUTICASONE/SALMETEROL [Concomitant]
  4. CYANOCOBALAMIN [Concomitant]

REACTIONS (6)
  - ASTHENIA [None]
  - ATELECTASIS [None]
  - CHILLS [None]
  - HYPERTENSION [None]
  - PNEUMONIA [None]
  - PYREXIA [None]
